FAERS Safety Report 16784616 (Version 1)
Quarter: 2019Q3

REPORT INFORMATION
  Report Type: Report from Study
  Country: FR (occurrence: FR)
  Receive Date: 20190909
  Receipt Date: 20190909
  Transmission Date: 20191005
  Serious: Yes (Other)
  Sender: FDA-Public Use
  Company Number: FR-ROCHE-2401194

PATIENT

DRUGS (6)
  1. 5-FU [FLUOROURACIL] [Suspect]
     Active Substance: FLUOROURACIL
     Indication: GASTRIC CANCER
     Route: 042
  2. LEUCOVORIN [FOLINIC ACID] [Suspect]
     Active Substance: LEUCOVORIN
     Indication: GASTRIC CANCER
     Route: 040
  3. TRASTUZUMAB. [Suspect]
     Active Substance: TRASTUZUMAB
     Indication: GASTRIC CANCER
     Route: 041
  4. OXALIPLATIN. [Suspect]
     Active Substance: OXALIPLATIN
     Indication: GASTRIC CANCER
     Route: 042
  5. DOCETAXEL. [Suspect]
     Active Substance: DOCETAXEL
     Indication: GASTRIC CANCER
     Route: 042
  6. FILGRASTINE [Concomitant]
     Active Substance: FILGRASTIM
     Indication: GASTRIC CANCER
     Dosage: 34 MUI/D
     Route: 065

REACTIONS (20)
  - Infection [Unknown]
  - Mucosal inflammation [Unknown]
  - Impaired healing [Unknown]
  - Pleural disorder [Unknown]
  - Intestinal obstruction [Unknown]
  - Neurotoxicity [Unknown]
  - Sepsis [Unknown]
  - Haemorrhage [Unknown]
  - Vomiting [Unknown]
  - Neuropathy peripheral [Unknown]
  - Pneumonia [Unknown]
  - Febrile neutropenia [Unknown]
  - Neutropenia [Unknown]
  - Hypersensitivity [Unknown]
  - Anaemia [Unknown]
  - Abdominal infection [Unknown]
  - Asthenia [Unknown]
  - Thrombocytopenia [Unknown]
  - Diarrhoea [Unknown]
  - Nausea [Unknown]
